FAERS Safety Report 5656790-3 (Version None)
Quarter: 2008Q1

REPORT INFORMATION
  Report Type: 
  Country: None (occurrence: None)
  Receive Date: 20080310
  Receipt Date: 20080227
  Transmission Date: 20080703
  Serious: Yes (Death, Other)
  Sender: FDA-Public Use
  Company Number: JP-WYE-H01806007

PATIENT
  Sex: Female

DRUGS (11)
  1. AMIODARONE HCL [Suspect]
     Indication: VENTRICULAR TACHYCARDIA
     Dosage: 125 MG OVER 10 MINUTES
     Route: 042
     Dates: start: 20071110, end: 20071110
  2. AMIODARONE HCL [Suspect]
     Dosage: 750 MG + 5% GLUCOSE OVER 6 HOURS
     Route: 042
     Dates: start: 20071110, end: 20071110
  3. AMIODARONE HCL [Suspect]
     Dosage: 750 MG + 5% GLUCOSE, 17 ML/HOUR
     Route: 042
     Dates: start: 20071110, end: 20071112
  4. AMIODARONE HCL [Suspect]
     Dosage: 750 MG + 5% GLUCOSE, 8 ML/HOUR
     Route: 042
     Dates: start: 20071112, end: 20071113
  5. MEXILETINE HYDROCHLORIDE [Concomitant]
     Indication: VENTRICULAR TACHYCARDIA
     Route: 048
     Dates: start: 20071114, end: 20071114
  6. MEXILETINE HYDROCHLORIDE [Concomitant]
     Route: 048
     Dates: start: 20071115, end: 20071126
  7. MEXILETINE HYDROCHLORIDE [Concomitant]
     Route: 048
     Dates: start: 20071127, end: 20071128
  8. NITROGLYCERIN [Concomitant]
     Indication: VENTRICULAR TACHYCARDIA
     Dosage: 3-4 ML/HR
     Route: 042
     Dates: start: 20071111, end: 20071120
  9. AMIODARONE HCL [Suspect]
     Indication: ARRHYTHMIA
     Route: 048
     Dates: start: 20071110, end: 20071127
  10. AMIODARONE HCL [Suspect]
     Route: 048
     Dates: start: 20071128
  11. LIDOCAINE [Concomitant]
     Indication: VENTRICULAR TACHYCARDIA
     Dosage: 3 TO 5 ML/HR
     Route: 042
     Dates: start: 20071109, end: 20071116

REACTIONS (2)
  - CARDIAC ARREST [None]
  - DRUG EFFECT DECREASED [None]
